FAERS Safety Report 6450136-9 (Version None)
Quarter: 2009Q4

REPORT INFORMATION
  Report Type: 
  Country: None (occurrence: None)
  Receive Date: 20091120
  Receipt Date: 20091120
  Transmission Date: 20100525
  Serious: Yes (Hospitalization)
  Sender: FDA-Public Use
  Company Number: None

PATIENT
  Age: 53 Year
  Sex: Female
  Weight: 99.34 kg

DRUGS (1)
  1. TRIMETHOPRIM-SULFAMETHOXAZOLE [Suspect]
     Indication: INFECTION
     Dosage: 400/80 MG EVERY DAY PO
     Route: 048
     Dates: start: 20081224, end: 20090126

REACTIONS (5)
  - ANGIOEDEMA [None]
  - CONJUNCTIVAL HYPERAEMIA [None]
  - LIP ULCERATION [None]
  - RASH MACULAR [None]
  - UNEVALUABLE EVENT [None]
